FAERS Safety Report 17787369 (Version 1)
Quarter: 2020Q2

REPORT INFORMATION
  Report Type: Spontaneous
  Country: FR (occurrence: FR)
  Receive Date: 20200514
  Receipt Date: 20200514
  Transmission Date: 20200714
  Serious: Yes (Hospitalization)
  Sender: FDA-Public Use
  Company Number: NVSC2020FR130154

PATIENT
  Age: 49 Year
  Sex: Male

DRUGS (3)
  1. GABAPENTIN. [Suspect]
     Active Substance: GABAPENTIN
     Indication: PAIN
     Dosage: 300 MG, UNKNOWN
     Route: 048
     Dates: start: 20200212, end: 20200213
  2. LAROXYL [Suspect]
     Active Substance: AMITRIPTYLINE HYDROCHLORIDE
     Indication: PAIN
     Dosage: 300 MG, UNKNOWN
     Route: 048
     Dates: start: 20200212, end: 20200213
  3. ZYVOXID [Suspect]
     Active Substance: LINEZOLID
     Indication: FOLLICULITIS
     Dosage: 600 MG, UNKNOWN
     Route: 048
     Dates: start: 20200211, end: 20200213

REACTIONS (1)
  - Serotonin syndrome [Recovered/Resolved]

NARRATIVE: CASE EVENT DATE: 20200213
